FAERS Safety Report 5492652-2 (Version None)
Quarter: 2007Q4

REPORT INFORMATION
  Report Type: 
  Country: None (occurrence: None)
  Receive Date: 20071022
  Receipt Date: 20071010
  Transmission Date: 20080405
  Serious: Yes (Other)
  Sender: FDA-Public Use
  Company Number: US-PFIZER INC-2007085540

PATIENT
  Age: 65 Year
  Sex: Male
  Weight: 77.6 kg

DRUGS (6)
  1. CHANTIX [Suspect]
     Indication: SMOKING CESSATION THERAPY
  2. PRAVASTATIN [Concomitant]
  3. LISINOPRIL [Concomitant]
  4. PIROXICAM [Concomitant]
  5. ALL OTHER THERAPEUTIC PRODUCTS [Concomitant]
  6. LUTEIN [Concomitant]

REACTIONS (7)
  - ABNORMAL DREAMS [None]
  - ANXIETY [None]
  - DEPRESSION [None]
  - GASTRIC DISORDER [None]
  - HYPERVENTILATION [None]
  - POLLAKIURIA [None]
  - SLEEP DISORDER [None]
